FAERS Safety Report 5398851-2 (Version None)
Quarter: 2007Q3

REPORT INFORMATION
  Report Type: 
  Country: None (occurrence: None)
  Receive Date: 20070727
  Receipt Date: 20070720
  Transmission Date: 20080115
  Serious: Yes (Other)
  Sender: FDA-Public Use
  Company Number: PHEH2006US08459

PATIENT
  Age: 74 Year
  Sex: Female

DRUGS (10)
  1. COMBIPATCH [Suspect]
     Indication: MENOPAUSAL SYMPTOMS
     Route: 062
     Dates: start: 20000101, end: 20030101
  2. ESTRATEST [Suspect]
     Indication: MENOPAUSE
  3. PREMARIN [Suspect]
  4. PROVERA [Suspect]
  5. TOPROL-XL [Concomitant]
     Indication: ANGINA PECTORIS
     Dates: start: 20000801, end: 20060801
  6. HYDROCHLORZIDE [Concomitant]
     Indication: DIURETIC THERAPY
     Dates: start: 20030801, end: 20060801
  7. NORVASC [Concomitant]
     Indication: HYPERTENSION
     Dates: start: 20030801, end: 20060801
  8. PLAQUENIL [Concomitant]
     Dates: start: 20000801, end: 20060801
  9. ALLEGRA [Concomitant]
     Indication: HYPERSENSITIVITY
  10. LIPITOR [Concomitant]
     Indication: BLOOD CHOLESTEROL
     Dates: start: 20050801, end: 20060801

REACTIONS (27)
  - ABDOMINAL PAIN [None]
  - ARTERIOSCLEROSIS CORONARY ARTERY [None]
  - ASTERIXIS [None]
  - AXILLARY MASS [None]
  - BENIGN NEOPLASM OF THYROID GLAND [None]
  - BREAST CANCER [None]
  - BREAST COSMETIC SURGERY [None]
  - BREAST MASS [None]
  - BREAST PAIN [None]
  - DIVERTICULUM [None]
  - DYSARTHRIA [None]
  - EMPHYSEMA [None]
  - FALL [None]
  - GASTROINTESTINAL DISORDER [None]
  - HAEMORRHOIDS [None]
  - HIP FRACTURE [None]
  - HIP SURGERY [None]
  - LIMB INJURY [None]
  - MYOCLONUS [None]
  - NARCOLEPSY [None]
  - OSTEOPOROSIS [None]
  - PAIN [None]
  - RADICAL MASTECTOMY [None]
  - RENAL CYST [None]
  - SLEEP APNOEA SYNDROME [None]
  - WRIST FRACTURE [None]
  - WRIST SURGERY [None]
